FAERS Safety Report 5986001-0 (Version None)
Quarter: 2008Q4

REPORT INFORMATION
  Report Type: 
  Country: None (occurrence: None)
  Receive Date: 20081209
  Receipt Date: 20081205
  Transmission Date: 20090506
  Serious: Yes (Other)
  Sender: FDA-Public Use
  Company Number: AU-JNJFOC-20081201428

PATIENT
  Age: 22 Year
  Sex: Male

DRUGS (1)
  1. CONCERTA [Suspect]
     Indication: TRISOMY 21
     Route: 065

REACTIONS (2)
  - AUTISM [None]
  - THERAPEUTIC RESPONSE DECREASED [None]
